FAERS Safety Report 18124146 (Version 2)
Quarter: 2020Q3

REPORT INFORMATION
  Report Type: Spontaneous
  Country: PH (occurrence: PH)
  Receive Date: 20200807
  Receipt Date: 20200901
  Transmission Date: 20201103
  Serious: Yes (Life-Threatening)
  Sender: FDA-Public Use
  Company Number: PH-EISAI MEDICAL RESEARCH-EC-2020-078592

PATIENT
  Age: 31 Year
  Sex: Female

DRUGS (7)
  1. FYCOMPA [Suspect]
     Active Substance: PERAMPANEL
     Route: 048
     Dates: start: 20200804, end: 20200805
  2. CEFOTAXIME [Concomitant]
     Active Substance: CEFOTAXIME SODIUM
     Indication: COVID-19 PNEUMONIA
     Dosage: DOSE AND FREQUENCY UNKNOWN
     Route: 042
     Dates: start: 20200804
  3. LEVETIRACETAM. [Concomitant]
     Active Substance: LEVETIRACETAM
     Dosage: INCREASED TO 3000 MG DAILY, FREQUENCY UNKNOWN
     Route: 042
     Dates: start: 2020
  4. LEVETIRACETAM. [Concomitant]
     Active Substance: LEVETIRACETAM
     Indication: SEIZURE
     Dosage: DOSE AND FREQUENCY UNKNOWN
     Route: 042
     Dates: start: 2020, end: 2020
  5. VALPROATE [Concomitant]
     Active Substance: VALPROIC ACID
     Dosage: DOSE INCREASED TO 4000 MG DAILY, FREQUENCY UNKNOWN
     Route: 042
     Dates: start: 2020
  6. FYCOMPA [Suspect]
     Active Substance: PERAMPANEL
     Indication: SEIZURE
     Route: 048
     Dates: start: 20200801, end: 20200803
  7. VALPROATE [Concomitant]
     Active Substance: VALPROIC ACID
     Indication: SEIZURE
     Dosage: DOSE AND FREQUENCY UNKNOWN
     Route: 042
     Dates: start: 2020, end: 2020

REACTIONS (1)
  - Stevens-Johnson syndrome [Recovered/Resolved]

NARRATIVE: CASE EVENT DATE: 20200805
